FAERS Safety Report 4401607-8 (Version None)
Quarter: 2004Q3

REPORT INFORMATION
  Report Type: 
  Country: None (occurrence: None)
  Receive Date: 20040719
  Receipt Date: 20040712
  Transmission Date: 20050211
  Serious: Yes (Other)
  Sender: FDA-Public Use
  Company Number: JP-BRISTOL-MYERS SQUIBB COMPANY-12637203

PATIENT
  Age: 59 Year
  Sex: Male
  Weight: 55 kg

DRUGS (3)
  1. METHOTREXATE [Suspect]
     Indication: RHEUMATOID ARTHRITIS
     Dosage: 1ST 3 WKS @ 4MG/WK
     Dates: start: 20020501
  2. PREDNISOLONE [Concomitant]
     Indication: RHEUMATOID ARTHRITIS
     Dosage: 30 MG/DAY INCR. TO 50 MG/DAY, THEN TO 35 MG/DAY
     Route: 048
     Dates: start: 20020401
  3. NSAID [Concomitant]

REACTIONS (1)
  - LYMPHOMA [None]
